FAERS Safety Report 10086449 (Version 4)
Quarter: 2014Q2

REPORT INFORMATION
  Report Type: Spontaneous
  Country: GB (occurrence: GB)
  Receive Date: 20140418
  Receipt Date: 20140528
  Transmission Date: 20141212
  Serious: Yes (Other)
  Sender: FDA-Public Use
  Company Number: GB-PFIZER INC-2014103255

PATIENT
  Age: 85 Year
  Sex: Female

DRUGS (7)
  1. ATORVASTATIN [Suspect]
     Dosage: UNK
     Route: 065
  2. BISOPROLOL FUMARATE [Suspect]
     Dosage: UNK
     Route: 065
  3. DIGOXIN [Suspect]
     Dosage: UNK
     Route: 065
  4. PROTHIADEN [Suspect]
     Dosage: UNK
     Route: 065
  5. CLOMETHIAZOLE [Suspect]
     Indication: SLEEP DISORDER
     Dosage: 192 MG, 2X/DAY
     Route: 048
  6. CLOMETHIAZOLE [Suspect]
     Dosage: 192 MG 1X/DAY (NOTE DOSE WAS REDUCED FROM TWO TO ONE CAPSULES DAILY)
     Route: 048
     Dates: start: 20140328
  7. PARACETAMOL [Suspect]
     Dosage: 1000 MG, 4X/DAY (2 X 500 MG FOUR TIMES DAILY)
     Route: 065

REACTIONS (6)
  - Agitation [Not Recovered/Not Resolved]
  - Decreased appetite [Not Recovered/Not Resolved]
  - Liver disorder [Not Recovered/Not Resolved]
  - Renal failure [Not Recovered/Not Resolved]
  - Insomnia [Not Recovered/Not Resolved]
  - General physical health deterioration [Not Recovered/Not Resolved]
